FAERS Safety Report 5147908-X (Version None)
Quarter: 2006Q4

REPORT INFORMATION
  Report Type: 
  Country: None (occurrence: None)
  Receive Date: 20061106
  Receipt Date: 20061024
  Transmission Date: 20070319
  Serious: Yes (Other)
  Sender: FDA-Public Use
  Company Number: 2006118481

PATIENT
  Sex: Female
  Weight: 113.3993 kg

DRUGS (7)
  1. GEODON [Suspect]
     Indication: BIPOLAR DISORDER
     Dosage: 60 MG (60 MG, 1 IN 1 D)
     Dates: start: 20050627, end: 20060126
  2. LAMICTAL [Concomitant]
  3. SYNTHROID [Concomitant]
  4. LIPITOR [Concomitant]
  5. ALDACTONE [Concomitant]
  6. GLUCOPHAGE [Concomitant]
  7. WELLBUTRIN [Concomitant]

REACTIONS (8)
  - BIPOLAR I DISORDER [None]
  - DIZZINESS [None]
  - EXTRAPYRAMIDAL DISORDER [None]
  - PARKINSON'S DISEASE [None]
  - RED BLOOD CELL COUNT DECREASED [None]
  - RESTLESS LEGS SYNDROME [None]
  - SLEEP DISORDER [None]
  - WEIGHT INCREASED [None]
